FAERS Safety Report 7355104-0 (Version None)
Quarter: 2011Q1

REPORT INFORMATION
  Report Type: 
  Country: None (occurrence: None)
  Receive Date: 20110316
  Receipt Date: 20110304
  Transmission Date: 20110831
  Serious: Yes (Hospitalization, Other)
  Sender: FDA-Public Use
  Company Number: IT-ELI_LILLY_AND_COMPANY-IT201102006402

PATIENT
  Age: 67 Year
  Sex: Male

DRUGS (3)
  1. EFFIENT [Suspect]
     Indication: ACUTE MYOCARDIAL INFARCTION
     Dosage: 60 MG, LOADING DOSE
     Route: 065
     Dates: start: 20101231
  2. EFFIENT [Suspect]
     Dosage: 10 MG, DAILY (1/D) MAINTENANCE DOSE
     Route: 065
  3. EFFIENT [Suspect]
     Dosage: 5 MG, UNKNOWN

REACTIONS (2)
  - RECTAL HAEMORRHAGE [None]
  - DIVERTICULUM INTESTINAL [None]
